FAERS Safety Report 8211041-0 (Version None)
Quarter: 2012Q1

REPORT INFORMATION
  Report Type: 
  Country: None (occurrence: None)
  Receive Date: 20120315
  Receipt Date: 20120306
  Transmission Date: 20120608
  Serious: Yes (Life-Threatening, Hospitalization)
  Sender: FDA-Public Use
  Company Number: PHHY2012TR019314

PATIENT
  Sex: Female

DRUGS (4)
  1. PROTON PUMP INHIBITORS [Concomitant]
  2. FOLIC ACID [Concomitant]
     Dosage: 1 DF, 3 DAYS/ WEEK
  3. EXJADE [Suspect]
     Indication: THALASSAEMIA BETA
  4. EXJADE [Suspect]
     Indication: CHELATION THERAPY
     Dosage: 750 MG, UNK
     Route: 048
     Dates: start: 20080101

REACTIONS (4)
  - HAEMATEMESIS [None]
  - GASTRIC HAEMORRHAGE [None]
  - GASTROENTERITIS [None]
  - VOMITING [None]
